FAERS Safety Report 9324107 (Version 1)
Quarter: 2013Q2

REPORT INFORMATION
  Report Type: Report from Study
  Country: FR (occurrence: FR)
  Receive Date: 20130603
  Receipt Date: 20130603
  Transmission Date: 20140414
  Serious: Yes (Other)
  Sender: FDA-Public Use
  Company Number: FR-PFIZER INC-2013163145

PATIENT
  Age: 76 Year
  Sex: Female

DRUGS (2)
  1. FLUCONAZOLE [Suspect]
     Dosage: UNK
  2. ZOPICLONE [Interacting]
     Dosage: UNK

REACTIONS (3)
  - Drug interaction [Unknown]
  - Respiratory depression [Unknown]
  - Somnolence [Unknown]
